FAERS Safety Report 8453078-2 (Version None)
Quarter: 2012Q2

REPORT INFORMATION
  Report Type: 
  Country: None (occurrence: None)
  Receive Date: 20120620
  Receipt Date: 20120507
  Transmission Date: 20120825
  Serious: No
  Sender: FDA-Public Use
  Company Number: US-VERTEX PHARMACEUTICALS INC.-AE-2012-006574

PATIENT
  Sex: Female
  Weight: 40.86 kg

DRUGS (7)
  1. PEGASYS [Concomitant]
     Indication: HEPATITIS C
     Route: 058
     Dates: start: 20120123, end: 20120129
  2. PEGASYS [Concomitant]
     Dates: start: 20120130, end: 20120205
  3. LEXAPRO [Concomitant]
     Indication: DEPRESSION
  4. PEGASYS [Concomitant]
     Dates: start: 20120206
  5. RIBAVIRIN [Concomitant]
     Indication: HEPATITIS C
     Dates: start: 20120123, end: 20120223
  6. INCIVEK [Suspect]
     Indication: HEPATITIS C
     Route: 048
     Dates: start: 20120123
  7. RIBAVIRIN [Concomitant]
     Dates: start: 20120223

REACTIONS (1)
  - ANAEMIA [None]
